FAERS Safety Report 10569413 (Version 1)
Quarter: 2014Q4

REPORT INFORMATION
  Report Type: Spontaneous
  Country: FR (occurrence: FR)
  Receive Date: 20141106
  Receipt Date: 20141106
  Transmission Date: 20150529
  Serious: Yes (Life-Threatening, Hospitalization, Other)
  Sender: FDA-Public Use
  Company Number: FR-BAXTER-2014BAX065140

PATIENT
  Age: 0 Year
  Sex: Male
  Weight: 1.44 kg

DRUGS (7)
  1. EPIRUBICINE [Suspect]
     Active Substance: EPIRUBICIN
     Indication: FOETAL EXPOSURE TIMING UNSPECIFIED
     Route: 064
     Dates: start: 20140701, end: 201408
  2. ENDOXAN 1000 MG, POUDRE POUR SOLUTION INJECTABLE [Suspect]
     Active Substance: CYCLOPHOSPHAMIDE
     Indication: FOETAL EXPOSURE TIMING UNSPECIFIED
     Route: 064
     Dates: start: 20140701, end: 201408
  3. FLUOROURACIL. [Suspect]
     Active Substance: FLUOROURACIL
     Indication: FOETAL EXPOSURE TIMING UNSPECIFIED
     Route: 064
     Dates: start: 20140701, end: 201408
  4. HERCEPTIN [Suspect]
     Active Substance: TRASTUZUMAB
     Indication: FOETAL EXPOSURE TIMING UNSPECIFIED
     Route: 064
     Dates: start: 20140902
  5. TAXOTERE [Suspect]
     Active Substance: DOCETAXEL
     Indication: FOETAL EXPOSURE TIMING UNSPECIFIED
     Route: 064
     Dates: start: 20140902
  6. SURFACTANT [Concomitant]
     Indication: PRODUCT USED FOR UNKNOWN INDICATION
     Route: 065
  7. IBUPROFEN. [Concomitant]
     Active Substance: IBUPROFEN
     Indication: PATENT DUCTUS ARTERIOSUS
     Route: 065

REACTIONS (2)
  - Neonatal respiratory distress syndrome [Unknown]
  - Foetal exposure during pregnancy [Recovered/Resolved]

NARRATIVE: CASE EVENT DATE: 20140701
